FAERS Safety Report 5112909-4 (Version None)
Quarter: 2006Q3

REPORT INFORMATION
  Report Type: 
  Country: None (occurrence: None)
  Receive Date: 20060922
  Receipt Date: 20060911
  Transmission Date: 20061208
  Serious: Yes (Death, Disabling)
  Sender: FDA-Public Use
  Company Number: US-BRISTOL-MYERS SQUIBB COMPANY-13505409

PATIENT
  Age: 38 Year
  Sex: Male

DRUGS (3)
  1. REYATAZ [Suspect]
     Indication: END STAGE AIDS
     Route: 048
     Dates: start: 20060707, end: 20060807
  2. COMBIVIR [Concomitant]
     Indication: END STAGE AIDS
  3. SEPTRA [Concomitant]
     Indication: END STAGE AIDS

REACTIONS (2)
  - ACQUIRED IMMUNODEFICIENCY SYNDROME [None]
  - DYSPHAGIA [None]
